FAERS Safety Report 11851275 (Version 1)
Quarter: 2015Q4

REPORT INFORMATION
  Report Type: Spontaneous
  Country: US (occurrence: US)
  Receive Date: 20151218
  Receipt Date: 20151218
  Transmission Date: 20160305
  Serious: No
  Sender: FDA-Public Use
  Company Number: US-JNJFOC-20150805631

PATIENT
  Age: 64 Year
  Sex: Female
  Weight: 69.85 kg

DRUGS (10)
  1. OTHER THERAPEUTIC MEDICATION [Concomitant]
     Active Substance: UNSPECIFIED INGREDIENT
     Indication: HAIR DISORDER
     Route: 065
  2. PUMPKIN OIL [Concomitant]
     Indication: HAIR DISORDER
     Route: 065
  3. WOMENS ROGAINE UNSCENTED [Suspect]
     Active Substance: MINOXIDIL
     Route: 061
  4. FISH OIL [Concomitant]
     Active Substance: FISH OIL
     Indication: HAIR DISORDER
     Route: 065
  5. VITAMIN B [Concomitant]
     Active Substance: VITAMIN B
     Indication: HAIR DISORDER
     Route: 065
  6. WOMENS ROGAINE UNSCENTED [Suspect]
     Active Substance: MINOXIDIL
     Indication: ALOPECIA
     Dosage: HALF CAPFUL, USED AROUND FOURTH OF JULY
     Route: 061
  7. PILOCARPINE. [Concomitant]
     Active Substance: PILOCARPINE
     Indication: PRODUCT USED FOR UNKNOWN INDICATION
     Route: 065
  8. MULTIVITAMINS [Concomitant]
     Active Substance: VITAMINS
     Indication: PRODUCT USED FOR UNKNOWN INDICATION
     Route: 065
  9. SAW PALMETTO [Concomitant]
     Active Substance: SAW PALMETTO
     Indication: HAIR DISORDER
     Route: 065
  10. RHODIOLA ROSEA [Concomitant]
     Active Substance: HERBALS
     Indication: HAIR DISORDER
     Route: 065

REACTIONS (1)
  - Alopecia [Not Recovered/Not Resolved]
